FAERS Safety Report 6415332-5 (Version None)
Quarter: 2009Q4

REPORT INFORMATION
  Report Type: 
  Country: None (occurrence: None)
  Receive Date: 20091027
  Receipt Date: 20091020
  Transmission Date: 20100525
  Serious: Yes (Hospitalization, Other)
  Sender: FDA-Public Use
  Company Number: PHHY2009BE45798

PATIENT
  Age: 73 Year
  Sex: Male

DRUGS (8)
  1. NEORAL [Suspect]
     Indication: PSORIASIS
     Dosage: 250MG/DAY
     Dates: start: 20050101
  2. NEORAL [Suspect]
     Dosage: UNK
     Dates: end: 20070101
  3. METHOTREXATE [Concomitant]
  4. ATACAND [Concomitant]
  5. XANAX [Concomitant]
  6. LIPITOR [Concomitant]
  7. ASAFLOW [Concomitant]
  8. PUVA [Concomitant]

REACTIONS (2)
  - GASTRIC CANCER [None]
  - GASTROINTESTINAL SURGERY [None]
